FAERS Safety Report 6185513-7 (Version None)
Quarter: 2009Q2

REPORT INFORMATION
  Report Type: 
  Country: None (occurrence: None)
  Receive Date: 20090511
  Receipt Date: 20090505
  Transmission Date: 20091009
  Serious: Yes (Hospitalization)
  Sender: FDA-Public Use
  Company Number: ES-BRISTOL-MYERS SQUIBB COMPANY-12999835

PATIENT
  Age: 37 Year
  Sex: Male

DRUGS (4)
  1. REYATAZ [Suspect]
     Indication: HIV INFECTION
     Dosage: 1DF=300  INCREASED TO 400MG
     Route: 048
  2. DIDANOSINE [Concomitant]
     Indication: HIV INFECTION
  3. LAMIVUDINE [Concomitant]
     Indication: HIV INFECTION
  4. LOPINAVIR AND RITONAVIR [Concomitant]
     Indication: HIV INFECTION

REACTIONS (1)
  - RENAL FAILURE [None]
